FAERS Safety Report 8570212-4 (Version None)
Quarter: 2012Q3

REPORT INFORMATION
  Report Type: 
  Country: None (occurrence: None)
  Receive Date: 20120803
  Receipt Date: 20120725
  Transmission Date: 20120928
  Serious: Yes (Hospitalization)
  Sender: FDA-Public Use
  Company Number: FR-FRI-1000037217

PATIENT
  Sex: Female
  Weight: 50 kg

DRUGS (9)
  1. CEFPODOXIME PROXETIL [Concomitant]
     Indication: BRONCHOPNEUMONIA
     Route: 048
     Dates: start: 20120701, end: 20120710
  2. ESCITALOPRAM [Suspect]
     Dosage: 15 MG
     Route: 048
     Dates: start: 20120401, end: 20120710
  3. NAPHAZOLINE HCL [Concomitant]
     Indication: BRONCHOPNEUMONIA
     Route: 048
     Dates: start: 20120701, end: 20120710
  4. ACETAMINOPHEN [Concomitant]
  5. ESCITALOPRAM [Suspect]
     Indication: DEPRESSION
     Dosage: 10 MG
     Route: 048
     Dates: start: 20120307, end: 20120401
  6. PANTOPRAZOLE [Concomitant]
     Dosage: 20 MG
     Route: 048
  7. SIMVASTATIN [Concomitant]
     Dosage: 40 MG
     Route: 048
  8. ZOPICLONE [Concomitant]
     Dosage: 7.5 MG
     Route: 048
  9. PREDNISOLONE [Concomitant]
     Indication: BRONCHOPNEUMONIA
     Route: 048
     Dates: start: 20120701, end: 20120710

REACTIONS (4)
  - INJURY [None]
  - OFF LABEL USE [None]
  - ELECTROCARDIOGRAM QT PROLONGED [None]
  - SYNCOPE [None]
